FAERS Safety Report 10577285 (Version 2)
Quarter: 2014Q4

REPORT INFORMATION
  Report Type: Spontaneous
  Country: CN (occurrence: CN)
  Receive Date: 20141111
  Receipt Date: 20141111
  Transmission Date: 20150529
  Serious: Yes (Other)
  Sender: FDA-Public Use
  Company Number: CN-ASTRAZENECA-2014SE24927

PATIENT
  Age: 70 Year
  Sex: Male

DRUGS (8)
  1. ZOLADEX [Suspect]
     Active Substance: GOSERELIN ACETATE
     Indication: PROSTATE CANCER
     Route: 058
     Dates: start: 20140619, end: 20140619
  2. FLUTAMIDE. [Concomitant]
     Active Substance: FLUTAMIDE
     Dates: end: 20140911
  3. FLUTAMIDE. [Concomitant]
     Active Substance: FLUTAMIDE
     Dates: start: 20141003
  4. CHINESE MEDICINE [Concomitant]
     Active Substance: UNSPECIFIED INGREDIENT
     Dates: end: 20140911
  5. CHINESE MEDICINE [Concomitant]
     Active Substance: UNSPECIFIED INGREDIENT
  6. ZOLADEX [Suspect]
     Active Substance: GOSERELIN ACETATE
     Indication: PROSTATE CANCER
     Route: 058
     Dates: start: 20140227
  7. CASODEX [Suspect]
     Active Substance: BICALUTAMIDE
     Indication: PROSTATE CANCER
     Route: 048
     Dates: start: 20140911, end: 20141003
  8. CASODEX [Suspect]
     Active Substance: BICALUTAMIDE
     Indication: PROSTATE CANCER
     Route: 048
     Dates: start: 20140227

REACTIONS (12)
  - Spinal fracture [Unknown]
  - Malignant neoplasm progression [Unknown]
  - Discomfort [Unknown]
  - Escherichia bacteraemia [Unknown]
  - Osteoporosis [Unknown]
  - Asthenia [Unknown]
  - Bacterial test [Unknown]
  - Injection site erythema [Recovered/Resolved]
  - Injection site pain [Recovered/Resolved]
  - Blood alkaline phosphatase increased [Unknown]
  - Goitre [Unknown]
  - White blood cell count decreased [Unknown]

NARRATIVE: CASE EVENT DATE: 20140327
